FAERS Safety Report 19676364 (Version 1)
Quarter: 2021Q3

REPORT INFORMATION
  Report Type: Spontaneous
  Country: US (occurrence: US)
  Receive Date: 20210809
  Receipt Date: 20210809
  Transmission Date: 20211014
  Serious: No
  Sender: FDA-Public Use
  Company Number: US-BIOGEN-2020BI00846845

PATIENT
  Sex: Female

DRUGS (8)
  1. OXYBUTYNIN. [Concomitant]
     Active Substance: OXYBUTYNIN CHLORIDE
     Route: 065
  2. TECFIDERA [Suspect]
     Active Substance: DIMETHYL FUMARATE
     Indication: MULTIPLE SCLEROSIS
     Route: 065
     Dates: start: 20140508
  3. FISH OIL [Concomitant]
     Active Substance: FISH OIL
     Route: 065
  4. TECFIDERA [Suspect]
     Active Substance: DIMETHYL FUMARATE
     Route: 065
     Dates: start: 20140110, end: 20160519
  5. TECFIDERA [Suspect]
     Active Substance: DIMETHYL FUMARATE
     Route: 065
     Dates: start: 20140623, end: 20190101
  6. TECFIDERA [Suspect]
     Active Substance: DIMETHYL FUMARATE
     Route: 065
     Dates: start: 20200326
  7. AMLODIPINE [Concomitant]
     Active Substance: AMLODIPINE BESYLATE
     Route: 065
  8. TYSABRI [Suspect]
     Active Substance: NATALIZUMAB
     Indication: MULTIPLE SCLEROSIS
     Route: 065
     Dates: start: 20120224, end: 20140110

REACTIONS (31)
  - Weight increased [Not Recovered/Not Resolved]
  - Temperature intolerance [Not Recovered/Not Resolved]
  - Flatulence [Unknown]
  - Asthenia [Unknown]
  - Depressed mood [Not Recovered/Not Resolved]
  - Dizziness [Not Recovered/Not Resolved]
  - Disturbance in attention [Unknown]
  - Laziness [Unknown]
  - Blood sodium increased [Unknown]
  - Inappropriate schedule of product administration [Unknown]
  - Underdose [Recovered/Resolved]
  - Pollakiuria [Not Recovered/Not Resolved]
  - Nervousness [Unknown]
  - Product dose omission issue [Not Recovered/Not Resolved]
  - Cognitive disorder [Not Recovered/Not Resolved]
  - Paranoia [Not Recovered/Not Resolved]
  - Dysgraphia [Unknown]
  - Mental impairment [Unknown]
  - Fatigue [Not Recovered/Not Resolved]
  - Confusional state [Unknown]
  - Urinary incontinence [Unknown]
  - Anal incontinence [Not Recovered/Not Resolved]
  - Pain [Unknown]
  - Decreased immune responsiveness [Unknown]
  - Stupor [Unknown]
  - Somnolence [Unknown]
  - Memory impairment [Unknown]
  - Apathy [Not Recovered/Not Resolved]
  - Hypermetropia [Not Recovered/Not Resolved]
  - Delirium [Unknown]
  - Angina pectoris [Unknown]
